FAERS Safety Report 5108652-8 (Version None)
Quarter: 2006Q3

REPORT INFORMATION
  Report Type: 
  Country: None (occurrence: None)
  Receive Date: 20060915
  Receipt Date: 20060901
  Transmission Date: 20061208
  Serious: Yes (Hospitalization, Other)
  Sender: FDA-Public Use
  Company Number: 2006AL002647

PATIENT
  Age: 46 Year
  Sex: Male

DRUGS (5)
  1. CITALOPRAM HYDROBROMIDE [Suspect]
     Dosage: 40 MG; QD
  2. GABAPENTIN [Suspect]
     Dosage: 600 MG; Q4H
  3. METHADONE HCL [Concomitant]
  4. DEXTROMETHORPHAN HYDROBROMIDE [Concomitant]
  5. NIGHT AND DAY [Concomitant]

REACTIONS (13)
  - ABDOMINAL TENDERNESS [None]
  - CLONUS [None]
  - CONFUSIONAL STATE [None]
  - CONVERSION DISORDER [None]
  - HEADACHE [None]
  - HYPERHIDROSIS [None]
  - HYPERREFLEXIA [None]
  - HYPERTONIA [None]
  - MYDRIASIS [None]
  - NASOPHARYNGITIS [None]
  - SEPSIS [None]
  - SEROTONIN SYNDROME [None]
  - WHITE BLOOD CELL COUNT INCREASED [None]
